FAERS Safety Report 20834067 (Version 1)
Quarter: 2022Q2

REPORT INFORMATION
  Report Type: 
  Country: None (occurrence: None)
  Receive Date: 20220516
  Receipt Date: 20220516
  Transmission Date: 20220721
  Serious: No
  Sender: FDA-Public Use
  Company Number: RU-ROCHE-3097503

PATIENT

DRUGS (1)
  1. EMICIZUMAB [Suspect]
     Active Substance: EMICIZUMAB
     Dates: start: 2021

REACTIONS (4)
  - Haemarthrosis [None]
  - Traumatic haematoma [None]
  - Injection site reaction [None]
  - Nasopharyngitis [None]
